FAERS Safety Report 4657226-1 (Version None)
Quarter: 2005Q2

REPORT INFORMATION
  Report Type: 
  Country: None (occurrence: None)
  Receive Date: 20050506
  Receipt Date: 20050406
  Transmission Date: 20051028
  Serious: Yes (Other)
  Sender: FDA-Public Use
  Company Number: 2004232267US

PATIENT
  Age: 74 Year
  Sex: Female

DRUGS (4)
  1. PROVERA [Suspect]
     Indication: HORMONE REPLACEMENT THERAPY
     Dosage: ORAL
     Route: 048
     Dates: start: 19700101, end: 20000101
  2. CONJUGATED ESTROGENS [Suspect]
     Indication: HORMONE REPLACEMENT THERAPY
     Dosage: (0.625 MG)
     Dates: start: 19700101, end: 20000101
  3. ATORVASTATIN CALCIUM [Concomitant]
  4. VERAPAMIL HCL [Concomitant]

REACTIONS (1)
  - BREAST CANCER FEMALE [None]
